FAERS Safety Report 20562816 (Version 1)
Quarter: 2022Q1

REPORT INFORMATION
  Report Type: Spontaneous
  Country: AR (occurrence: AR)
  Receive Date: 20220307
  Receipt Date: 20220307
  Transmission Date: 20220423
  Serious: Yes (Other)
  Sender: FDA-Public Use
  Company Number: AR-PFIZER INC-202101797406

PATIENT
  Age: 68 Year
  Sex: Female

DRUGS (1)
  1. INLYTA [Suspect]
     Active Substance: AXITINIB
     Indication: Renal cancer
     Dosage: 10 MG, DAILY
     Dates: start: 20180714

REACTIONS (7)
  - Stomatitis [Recovered/Resolved]
  - Pharyngeal ulceration [Recovered/Resolved]
  - Gastrointestinal ulcer [Recovered/Resolved]
  - Blister [Recovered/Resolved]
  - Hyperkeratosis [Recovered/Resolved]
  - Skin exfoliation [Unknown]
  - Diarrhoea [Recovered/Resolved]

NARRATIVE: CASE EVENT DATE: 20190101
